FAERS Safety Report 10354292 (Version 1)
Quarter: 2014Q3

REPORT INFORMATION
  Report Type: Spontaneous
  Country: CH (occurrence: CH)
  Receive Date: 20140731
  Receipt Date: 20140731
  Transmission Date: 20150326
  Serious: Yes (Other)
  Sender: FDA-Public Use
  Company Number: CH-ASTRAZENECA-2014SE54574

PATIENT
  Age: 19 Year
  Sex: Female

DRUGS (4)
  1. TELEBRIX [Suspect]
     Active Substance: MEGLUMINE IOXITHALAMATE
     Indication: ANAESTHESIA
     Route: 066
     Dates: start: 20140708, end: 20140708
  2. AUGMENTIN [Concomitant]
     Active Substance: AMOXICILLIN\CLAVULANATE POTASSIUM
     Dates: start: 20140629
  3. DISOPRIVAN [Suspect]
     Active Substance: PROPOFOL
     Indication: ANAESTHESIA
     Route: 042
     Dates: start: 20140708, end: 20140708
  4. FENTANYL. [Suspect]
     Active Substance: FENTANYL
     Indication: ANAESTHESIA
     Route: 042
     Dates: start: 20140708, end: 20140708

REACTIONS (5)
  - Face oedema [Recovered/Resolved]
  - Hypersensitivity [Recovered/Resolved]
  - Oedema peripheral [Recovered/Resolved]
  - Urticaria [Recovered/Resolved]
  - Pruritus [Recovered/Resolved]

NARRATIVE: CASE EVENT DATE: 20140709
